FAERS Safety Report 5216582-6 (Version None)
Quarter: 2007Q1

REPORT INFORMATION
  Report Type: 
  Country: None (occurrence: None)
  Receive Date: 20061130
  Receipt Date: 20060814
  Transmission Date: 20070707
  Serious: Yes (Other)
  Sender: FDA-Public Use
  Company Number: US200608002899

PATIENT
  Age: 45 Year
  Sex: Male
  Weight: 65.8 kg

DRUGS (3)
  1. ZYPREXA [Suspect]
  2. SEROQUEL [Concomitant]
  3. THORAZINE [Concomitant]

REACTIONS (1)
  - PANCREATITIS [None]
